FAERS Safety Report 7176383-9 (Version None)
Quarter: 2010Q4

REPORT INFORMATION
  Report Type: 
  Country: None (occurrence: None)
  Receive Date: 20101220
  Receipt Date: 20101215
  Transmission Date: 20110411
  Serious: Yes (Other)
  Sender: FDA-Public Use
  Company Number: FR-US-EMD SERONO, INC.-7031871

PATIENT
  Age: 30 Year
  Sex: Female

DRUGS (2)
  1. OVIDREL [Suspect]
     Indication: OVULATION INDUCTION
     Dosage: 2771 PG/ML
  2. GONADOTROPIN RELEASING HORMONE (GNRH) [Suspect]
     Indication: OVULATION INDUCTION

REACTIONS (1)
  - ECTOPIC PREGNANCY [None]
